FAERS Safety Report 12037023 (Version 1)
Quarter: 2016Q1

REPORT INFORMATION
  Report Type: Spontaneous
  Country: US (occurrence: US)
  Receive Date: 20160208
  Receipt Date: 20160208
  Transmission Date: 20160526
  Serious: Yes (Other)
  Sender: FDA-Public Use
  Company Number: US-BEH-2016058393

PATIENT
  Sex: Female
  Weight: 47 kg

DRUGS (9)
  1. MOXEZA [Concomitant]
     Active Substance: MOXIFLOXACIN HYDROCHLORIDE
  2. EPIPEN [Concomitant]
     Active Substance: EPINEPHRINE
  3. LMX [Concomitant]
     Active Substance: LIDOCAINE
  4. FLOVENT [Concomitant]
     Active Substance: FLUTICASONE PROPIONATE
  5. MULTIVITAMINS [Concomitant]
     Active Substance: VITAMINS
  6. DIPHENHYDRAMINE. [Concomitant]
     Active Substance: DIPHENHYDRAMINE
  7. HIZENTRA [Suspect]
     Active Substance: HUMAN IMMUNOGLOBULIN G
     Indication: IMMUNODEFICIENCY
     Dosage: 4 GM 20 ML VIAL
     Route: 058
     Dates: start: 20130312
  8. XOPENEX [Concomitant]
     Active Substance: LEVALBUTEROL HYDROCHLORIDE
  9. VERAMYST [Concomitant]
     Active Substance: FLUTICASONE FUROATE

REACTIONS (1)
  - Croup infectious [Unknown]
